FAERS Safety Report 9668258 (Version 2)
Quarter: 2013Q4

REPORT INFORMATION
  Report Type: Report from Study
  Country: ZM (occurrence: ZM)
  Receive Date: 20131104
  Receipt Date: 20131115
  Transmission Date: 20140711
  Serious: Yes (Life-Threatening)
  Sender: FDA-Public Use
  Company Number: ZM-GILEAD-2013-0086664

PATIENT
  Age: 6 Month
  Sex: Female
  Weight: 6.9 kg

DRUGS (5)
  1. EMTRICITABINE/TENOFOVIR DISOPROXIL FUMARATE [Suspect]
     Indication: HIV INFECTION
     Dosage: UNK
     Route: 048
  2. EMTRICITABINE/TENOFOVIR DISOPROXIL FUMARATE [Suspect]
     Dosage: 1 DF, QD
     Route: 064
     Dates: start: 20130321, end: 20130425
  3. NEVIRAPINE [Suspect]
     Indication: HIV INFECTION
     Dosage: 15 MG, ONCE
     Route: 048
     Dates: start: 20130425, end: 20130612
  4. NEVIRAPINE [Suspect]
     Dosage: UNK
     Route: 064
     Dates: start: 20130321, end: 20130425
  5. NEVIRAPINE [Suspect]
     Dosage: UNK
     Route: 048

REACTIONS (1)
  - Neutropenia [Recovered/Resolved]
